FAERS Safety Report 4897049-1 (Version None)
Quarter: 2006Q1

REPORT INFORMATION
  Report Type: 
  Country: None (occurrence: None)
  Receive Date: 20060127
  Receipt Date: 20060117
  Transmission Date: 20060701
  Serious: Yes (Death)
  Sender: FDA-Public Use
  Company Number: 2006-00195

PATIENT
  Age: 68 Year
  Sex: Male

DRUGS (4)
  1. COLCHICINE (WATSON LABORATORIES)(COLCHICINE) TABLET, 0.6MG [Suspect]
     Indication: GOUTY ARTHRITIS
     Dosage: SEE IMAGE
     Route: 048
  2. COLCHICINE (WATSON LABORATORIES)(COLCHICINE) TABLET, 0.6MG [Suspect]
     Indication: GOUTY ARTHRITIS
     Dosage: SEE IMAGE
     Route: 048
  3. CLARITHROMYCIN [Suspect]
     Indication: PNEUMONIA
     Dosage: 500 MG, BID (DAY 1 TO DAY 11), ORAL
     Route: 048
  4. PIPERACILLIN SODIUM W/TAZOBACTAM SODIUM (PIPERACILLIN SODIUM, TAZOBACT [Concomitant]

REACTIONS (3)
  - AGRANULOCYTOSIS [None]
  - DRUG INTERACTION [None]
  - HEPATIC NECROSIS [None]
